FAERS Safety Report 8478843-7 (Version None)
Quarter: 2012Q2

REPORT INFORMATION
  Report Type: 
  Country: None (occurrence: None)
  Receive Date: 20120629
  Receipt Date: 20120620
  Transmission Date: 20120825
  Serious: Yes (Other)
  Sender: FDA-Public Use
  Company Number: NZ-JNJFOC-20120610790

PATIENT
  Age: 5 Decade
  Sex: Female

DRUGS (4)
  1. OLANZAPINE [Suspect]
     Indication: PRODUCT USED FOR UNKNOWN INDICATION
     Route: 048
     Dates: end: 20120101
  2. OLANZAPINE [Suspect]
     Route: 048
  3. RISPERDAL CONSTA [Suspect]
     Indication: PRODUCT USED FOR UNKNOWN INDICATION
     Dosage: MAINTAINANCE DOSE
     Route: 030
     Dates: end: 20120501
  4. OLANZAPINE [Suspect]
     Route: 048

REACTIONS (2)
  - BREAST CANCER [None]
  - BLOOD PROLACTIN INCREASED [None]
